FAERS Safety Report 9808201 (Version 1)
Quarter: 2014Q1

REPORT INFORMATION
  Report Type: Spontaneous
  Country: US (occurrence: US)
  Receive Date: 20140110
  Receipt Date: 20140110
  Transmission Date: 20141002
  Serious: Yes (Life-Threatening, Disabling, Other)
  Sender: FDA-Public Use
  Company Number: US-RB-062322-14

PATIENT
  Age: 59 Year
  Sex: Female

DRUGS (8)
  1. SUBOXONE FILM [Suspect]
     Dosage: SUBOXONE FILM
     Route: 060
     Dates: start: 201302, end: 2013
  2. SUBOXONE FILM [Suspect]
     Indication: DRUG DEPENDENCE
     Dosage: SUBOXONE FILM; CUTTING AND TAKING VARIOUS TAPERED DOSES
     Route: 060
     Dates: start: 2013
  3. LEXAPRO [Concomitant]
     Indication: DEPRESSION
     Dosage: UNKNOWN DAILY DOSING
     Route: 048
  4. NEURONTIN [Concomitant]
     Indication: PRODUCT USED FOR UNKNOWN INDICATION
     Dosage: UNKNOWN DOSING DETAILS
     Route: 048
  5. CLONAZEPAM [Concomitant]
     Indication: ANXIETY
     Dosage: UNKNOWN DOSING DETAILS
     Route: 048
  6. CARVEDILOL [Concomitant]
     Indication: CARDIOMYOPATHY
     Dosage: UNKNOWN DAILY DOSING
     Route: 048
  7. PRILOSEC [Concomitant]
     Indication: GASTROOESOPHAGEAL REFLUX DISEASE
     Dosage: UNKNOWN DAILY DOSING
     Route: 048
  8. FLONASE [Concomitant]
     Indication: SINUS DISORDER
     Dosage: UNKNOWN DOSING DETAILS
     Route: 055

REACTIONS (24)
  - Drug withdrawal syndrome [Not Recovered/Not Resolved]
  - Bronchitis [Not Recovered/Not Resolved]
  - Nervousness [Not Recovered/Not Resolved]
  - Loss of consciousness [Recovered/Resolved]
  - Brain oedema [Not Recovered/Not Resolved]
  - Condition aggravated [Not Recovered/Not Resolved]
  - Mental disability [Not Recovered/Not Resolved]
  - Physical disability [Not Recovered/Not Resolved]
  - Respiratory depression [Unknown]
  - Tremor [Not Recovered/Not Resolved]
  - Dysuria [Not Recovered/Not Resolved]
  - Urinary incontinence [Not Recovered/Not Resolved]
  - Nausea [Not Recovered/Not Resolved]
  - Dental caries [Not Recovered/Not Resolved]
  - Headache [Not Recovered/Not Resolved]
  - Intentional underdose [Not Recovered/Not Resolved]
  - Wrong technique in drug usage process [Not Recovered/Not Resolved]
  - Tooth loss [Not Recovered/Not Resolved]
  - Hypersensitivity [Not Recovered/Not Resolved]
  - Vision blurred [Unknown]
  - Feeling abnormal [Not Recovered/Not Resolved]
  - Ulcer [Unknown]
  - Abdominal pain [Unknown]
  - Chronic obstructive pulmonary disease [Unknown]
